FAERS Safety Report 6164020-1 (Version None)
Quarter: 2009Q2

REPORT INFORMATION
  Report Type: 
  Country: None (occurrence: None)
  Receive Date: 20090420
  Receipt Date: 20090407
  Transmission Date: 20091009
  Serious: Yes (Other)
  Sender: FDA-Public Use
  Company Number: 2009-01431

PATIENT
  Age: 57 Year
  Sex: Male

DRUGS (6)
  1. VELCADE [Suspect]
     Indication: LYMPHOMA
     Dosage: 1.3 MG/M2 UNK INTRAVENOUS
     Route: 042
     Dates: start: 20090223, end: 20090326
  2. VINCRISTINE SULFATE [Suspect]
     Indication: LYMPHOMA
     Dosage: UNK UNK INTRAVENOUS
     Route: 042
     Dates: start: 20090223, end: 20090326
  3. RITUXIMAB [Concomitant]
  4. CYCLOPHOSPHAMIDE [Concomitant]
  5. DOXORUBICIN HCL [Concomitant]
  6. PREDNISOLONE [Concomitant]

REACTIONS (4)
  - HERPES ZOSTER [None]
  - LYMPHOMA [None]
  - MALIGNANT NEOPLASM PROGRESSION [None]
  - RADIAL NERVE PALSY [None]
